FAERS Safety Report 4730241-5 (Version None)
Quarter: 2005Q3

REPORT INFORMATION
  Report Type: 
  Country: None (occurrence: None)
  Receive Date: 20050728
  Receipt Date: 20050715
  Transmission Date: 20060218
  Serious: Yes (Other)
  Sender: FDA-Public Use
  Company Number: 2005103605

PATIENT
  Sex: Female

DRUGS (2)
  1. DEPO-PROVERA [Suspect]
     Indication: CONTRACEPTION
     Dosage: 150 MG (150 MG, FIRST INJECTION FIRST CYCLE) : 150 MG (150 MG, SINGLE INJECTION SECOND CYCLE)
     Dates: start: 20000101, end: 20000101
  2. DEPO-PROVERA [Suspect]
     Indication: CONTRACEPTION
     Dosage: 150 MG (150 MG, FIRST INJECTION FIRST CYCLE) : 150 MG (150 MG, SINGLE INJECTION SECOND CYCLE)
     Dates: start: 20041101, end: 20041101

REACTIONS (2)
  - OVARIAN CYST [None]
  - WEIGHT INCREASED [None]
